APPROVED DRUG PRODUCT: PREGABALIN
Active Ingredient: PREGABALIN
Strength: 50MG
Dosage Form/Route: CAPSULE;ORAL
Application: A212865 | Product #001 | TE Code: AB
Applicant: CHARTWELL RX SCIENCES LLC
Approved: Mar 20, 2020 | RLD: No | RS: No | Type: RX